FAERS Safety Report 18765975 (Version 4)
Quarter: 2021Q2

REPORT INFORMATION
  Report Type: Report from Study
  Country: None (occurrence: FR)
  Receive Date: 20210120
  Receipt Date: 20210429
  Transmission Date: 20210717
  Serious: Yes (Hospitalization, Other)
  Sender: FDA-Public Use
  Company Number: FR-ABBVIE-21K-056-3737144-00

PATIENT
  Age: 49 Year
  Sex: Male

DRUGS (2)
  1. DUODOPA [Suspect]
     Active Substance: CARBIDOPA\LEVODOPA
     Indication: PARKINSON^S DISEASE
     Route: 050
     Dates: start: 201901
  2. DUODOPA [Suspect]
     Active Substance: CARBIDOPA\LEVODOPA

REACTIONS (7)
  - Aggression [Unknown]
  - Benign neoplasm of skin [Not Recovered/Not Resolved]
  - Schizophrenia [Unknown]
  - Scar [Unknown]
  - Psychiatric symptom [Unknown]
  - Thinking abnormal [Unknown]
  - Abscess limb [Unknown]

NARRATIVE: CASE EVENT DATE: 202104
